FAERS Safety Report 9613696 (Version 2)
Quarter: 2013Q4

REPORT INFORMATION
  Report Type: Report from Study
  Country: IT (occurrence: IT)
  Receive Date: 20131010
  Receipt Date: 20131106
  Transmission Date: 20140711
  Serious: Yes (Life-Threatening, Hospitalization)
  Sender: FDA-Public Use
  Company Number: IT-MERCK-1310ITA004401

PATIENT
  Age: 51 Year
  Sex: Female

DRUGS (6)
  1. MK-0000 [Suspect]
     Dosage: UNK
  2. MK-0000 [Suspect]
     Dosage: UNK
  3. LEVETIRACETAM [Concomitant]
  4. OMEPRAZOLE [Concomitant]
     Indication: ANTACID THERAPY
  5. TEMOZOLOMIDE [Suspect]
     Indication: GLIOBLASTOMA
     Dosage: 75 MG/M2 DAILY WITH RADIATION THERAPY FOR 6 WEEKS
     Route: 048
  6. TEMOZOLOMIDE [Suspect]
     Dosage: ADJUVANT FOR 6 CYCLES (150 TO 200 MG/M2 FOR 5 D DURING EACH 28-D CYCLE)
     Route: 048

REACTIONS (1)
  - Bone marrow toxicity [Unknown]
